FAERS Safety Report 8762610 (Version 1)
Quarter: 2012Q4

REPORT INFORMATION
  Report Type: 
  Country: CN (occurrence: CN)
  Receive Date: 20120830
  Receipt Date: 20120830
  Transmission Date: 20130627
  Serious: Yes (Other)
  Sender: FDA-Public Use
  Company Number: CN-ROCHE-CID000000002130279

PATIENT
  Age: 10 Year
  Sex: Female
  Weight: 32 kg

DRUGS (4)
  1. ROCEPHIN [Suspect]
     Indication: BRONCHOPNEUMONIA
     Route: 041
     Dates: start: 20080917, end: 20080917
  2. ROCEPHIN [Suspect]
     Indication: ASTHMA
  3. SODIUM CHLORIDE [Concomitant]
     Indication: BRONCHOPNEUMONIA
     Dates: start: 20080917
  4. SODIUM CHLORIDE [Concomitant]
     Indication: ASTHMA

REACTIONS (3)
  - Tic [Recovering/Resolving]
  - Hyperhidrosis [Unknown]
  - Heart rate increased [Not Recovered/Not Resolved]
